FAERS Safety Report 8054790-X (Version None)
Quarter: 2012Q1

REPORT INFORMATION
  Report Type: 
  Country: None (occurrence: None)
  Receive Date: 20120112
  Receipt Date: 20120102
  Transmission Date: 20120608
  Serious: Yes (Other)
  Sender: FDA-Public Use
  Company Number: 1152836

PATIENT
  Age: 28 Year
  Sex: Female

DRUGS (17)
  1. FERROUS FUMARATE [Concomitant]
  2. (MULTIVITAMIN /00097801/) [Concomitant]
  3. CREON [Concomitant]
  4. FLUTICASONE PROPIONATE [Concomitant]
  5. FLUTICASONE PROPIONATE/SALMETEROL [Concomitant]
  6. (ANTISEPTICS) [Concomitant]
  7. ALBUTEROL SULFATE AUTOHALER [Concomitant]
  8. LACTULOSE [Concomitant]
  9. (VITAMIN E /00110501/) [Concomitant]
  10. RISEDRONATE SODIUM [Concomitant]
  11. PULMOZYME [Concomitant]
  12. CALCIUM CARBONATE [Concomitant]
  13. SODIUM CHLORIDE [Concomitant]
  14. TOBRAMYCIN [Concomitant]
  15. MEROPENEM [Suspect]
     Indication: INFECTION
     Dosage: 2 G GRAM(S), 1 DAY, INTRAVENOUS (NOT SPECIFIED)
     Route: 042
     Dates: start: 20111216
  16. AZITHROMYCIN [Concomitant]
  17. OMEPRAZOLE [Concomitant]

REACTIONS (1)
  - PAIN IN EXTREMITY [None]
